FAERS Safety Report 5481083-7 (Version None)
Quarter: 2007Q4

REPORT INFORMATION
  Report Type: 
  Country: None (occurrence: None)
  Receive Date: 20071009
  Receipt Date: 20070927
  Transmission Date: 20080405
  Serious: Yes (Other)
  Sender: FDA-Public Use
  Company Number: US-PFIZER INC-2007082163

PATIENT
  Sex: Female
  Weight: 70.3 kg

DRUGS (8)
  1. CHANTIX [Suspect]
     Indication: EX-SMOKER
     Route: 048
     Dates: start: 20070601, end: 20070927
  2. SYNTHROID [Concomitant]
  3. NEXIUM [Concomitant]
  4. XANAX [Concomitant]
  5. CITRUCEL [Concomitant]
  6. SINEQUAN [Concomitant]
  7. ZOCOR [Concomitant]
  8. ACETYLSALICYLIC ACID [Concomitant]

REACTIONS (6)
  - DIARRHOEA [None]
  - HEADACHE [None]
  - INTENTIONAL DRUG MISUSE [None]
  - NAUSEA [None]
  - VOMITING [None]
  - WEIGHT DECREASED [None]
